FAERS Safety Report 15546871 (Version 1)
Quarter: 2018Q4

REPORT INFORMATION
  Report Type: Spontaneous
  Country: US (occurrence: US)
  Receive Date: 20181024
  Receipt Date: 20181024
  Transmission Date: 20190205
  Serious: No
  Sender: FDA-Public Use
  Company Number: US-ALLERGAN-1824741US

PATIENT
  Sex: Male

DRUGS (3)
  1. PROBIOTICS [Concomitant]
     Active Substance: PROBIOTICS NOS
     Dosage: UNK
  2. PYLERA [Suspect]
     Active Substance: BISMUTH SUBCITRATE POTASSIUM\METRONIDAZOLE\TETRACYCLINE HYDROCHLORIDE
     Indication: PRODUCT USED FOR UNKNOWN INDICATION
     Dosage: 120 PILLS IN 10 DAYS
     Route: 048
     Dates: start: 20180410, end: 20180419
  3. OMEPRAZOLE. [Concomitant]
     Active Substance: OMEPRAZOLE
     Indication: GASTRIC PH DECREASED
     Dosage: UNK UNK, BID
     Route: 048

REACTIONS (5)
  - Abnormal faeces [Unknown]
  - Pain in extremity [Unknown]
  - Faeces hard [Unknown]
  - Paranoia [Unknown]
  - Therapeutic response unexpected [Unknown]
